FAERS Safety Report 9783674 (Version 1)
Quarter: 2013Q4

REPORT INFORMATION
  Report Type: Spontaneous
  Country: AU (occurrence: None)
  Receive Date: 20131223
  Receipt Date: 20131223
  Transmission Date: 20140711
  Serious: Yes (Other)
  Sender: FDA-Public Use
  Company Number: 2013000347

PATIENT
  Age: 87 Year
  Sex: Female

DRUGS (6)
  1. ACEON [Suspect]
     Indication: PRODUCT USED FOR UNKNOWN INDICATION
  2. DIAMICRON (GLICLAZIDE) [Concomitant]
  3. PREDNISOLONE (PREDNISOLONE) [Concomitant]
  4. PRAVACHOL (PRAVASTATIN SODIUM) [Concomitant]
  5. ASTRIX (ACETYLSALICYLIC ACID) [Concomitant]
  6. COVERSYL PLUS (INDAPAMIDE, PERINDOPRIL ERBUMINE) [Concomitant]

REACTIONS (4)
  - Choking sensation [None]
  - Lip swelling [None]
  - Asthenia [None]
  - Headache [None]
